FAERS Safety Report 6028007-1 (Version None)
Quarter: 2008Q4

REPORT INFORMATION
  Report Type: 
  Country: None (occurrence: None)
  Receive Date: 20081223
  Receipt Date: 20081209
  Transmission Date: 20090506
  Serious: Yes (Other)
  Sender: FDA-Public Use
  Company Number: B0550948A

PATIENT
  Sex: Female

DRUGS (1)
  1. RETROVIR [Suspect]
     Indication: HIV INFECTION

REACTIONS (2)
  - MATERNAL DRUGS AFFECTING FOETUS [None]
  - PINEALOBLASTOMA [None]
